FAERS Safety Report 15768120 (Version 1)
Quarter: 2018Q4

REPORT INFORMATION
  Report Type: Report from Study
  Country: US (occurrence: US)
  Receive Date: 20181227
  Receipt Date: 20181227
  Transmission Date: 20190205
  Serious: Yes (Other)
  Sender: FDA-Public Use
  Company Number: US-MYLANLABS-2018M1094643

PATIENT

DRUGS (4)
  1. TRANEXAMIC ACID. [Suspect]
     Active Substance: TRANEXAMIC ACID
     Dosage: 1G IN 100ML OF 0.9% NORMAL SALINE, INFUSED OVER 8 HOURS
     Route: 041
  2. TRANEXAMIC ACID. [Suspect]
     Active Substance: TRANEXAMIC ACID
     Indication: PRODUCT USED FOR UNKNOWN INDICATION
     Dosage: 1G IN 100ML OF 0.9% NORMAL SALINE, INFUSED OVER 10 MINUTES
     Route: 050
  3. NORMAL SALINE [Concomitant]
     Active Substance: SODIUM CHLORIDE
     Indication: PRODUCT USED FOR UNKNOWN INDICATION
     Dosage: 100ML OF 0.9% NORMAL SALINE MIXED WITH 1G TRANEXAMIC ACID, INFUSED OVER 10 MINUTES
     Route: 050
  4. NORMAL SALINE [Concomitant]
     Active Substance: SODIUM CHLORIDE
     Dosage: 100ML OF 0.9% NORMAL SALINE MIXED WITH 1G TRANEXAMIC ACID, INFUSED OVER 8 HOURS
     Route: 041

REACTIONS (1)
  - Ischaemic stroke [Unknown]
